FAERS Safety Report 25719159 (Version 1)
Quarter: 2025Q3

REPORT INFORMATION
  Report Type: Spontaneous
  Country: CH (occurrence: CH)
  Receive Date: 20250823
  Receipt Date: 20250823
  Transmission Date: 20251020
  Serious: Yes (Death, Life-Threatening)
  Sender: ACCORD
  Company Number: CH-MLMSERVICE-20250805-PI604199-00097-1

PATIENT
  Age: 42 Year
  Sex: Male
  Weight: 75 kg

DRUGS (4)
  1. MYCOPHENOLATE MOFETIL [Suspect]
     Active Substance: MYCOPHENOLATE MOFETIL
     Indication: Immunosuppressant drug therapy
  2. TACROLIMUS [Suspect]
     Active Substance: TACROLIMUS
     Indication: Immunosuppressant drug therapy
  3. CYCLOSPORINE [Suspect]
     Active Substance: CYCLOSPORINE
     Indication: Immunosuppressant drug therapy
  4. PREDNISONE [Suspect]
     Active Substance: PREDNISONE
     Indication: Immunosuppressant drug therapy
     Dosage: MAINTENANCE DOSE 0.1 MG/KG/DAY, BODY WEIGHT 75 KG

REACTIONS (4)
  - Cholangiocarcinoma [Fatal]
  - Metastases to lung [Fatal]
  - Neoplasm progression [Fatal]
  - Hepatic failure [Fatal]
